FAERS Safety Report 6831981-4 (Version None)
Quarter: 2010Q3

REPORT INFORMATION
  Report Type: 
  Country: None (occurrence: None)
  Receive Date: 20100712
  Receipt Date: 20100701
  Transmission Date: 20110219
  Serious: Yes (Hospitalization)
  Sender: FDA-Public Use
  Company Number: IE-ROCHE-712115

PATIENT
  Sex: Female
  Weight: 55 kg

DRUGS (7)
  1. TRASTUZUMAB [Suspect]
     Indication: BREAST CANCER
     Dosage: LOADING DOSE ACCORDING TO PROTOCOL, PATIENT WILL BE RECEIVING MAINTANANCE DOSE AFTER 3 WEEKS.
     Route: 042
     Dates: start: 20100622
  2. BEVACIZUMAB [Suspect]
     Indication: BREAST CANCER
     Dosage: LAST DOSE PRIOR TO SAE: 22 JUNE 2010
     Route: 042
     Dates: start: 20100622
  3. DOCETAXEL [Suspect]
     Indication: BREAST CANCER
     Dosage: LAST DOSE PRIOR TO SAE: 22 JUNE 2010
     Route: 042
     Dates: start: 20100622
  4. CARBOPLATIN [Suspect]
     Indication: BREAST CANCER
     Dosage: LAST DOSE PRIOR TO SAE: 22 JUNE 2010
     Route: 042
     Dates: start: 20100622
  5. DEXAMETHASONE ACETATE [Suspect]
     Indication: PRODUCT USED FOR UNKNOWN INDICATION
     Dosage: DRUG: DECADRON,
     Route: 065
  6. STEMETIL [Concomitant]
     Dosage: FREQUENCY: PRN
  7. ACETAMINOPHEN [Concomitant]
     Dosage: FREQUENCY: PRN

REACTIONS (1)
  - INTESTINAL PERFORATION [None]
